FAERS Safety Report 5044841-9 (Version None)
Quarter: 2006Q3

REPORT INFORMATION
  Report Type: 
  Country: None (occurrence: None)
  Receive Date: 20060705
  Receipt Date: 20060623
  Transmission Date: 20061208
  Serious: Yes (Other)
  Sender: FDA-Public Use
  Company Number: 2006-06-2113

PATIENT
  Age: 48 Year
  Sex: Female

DRUGS (4)
  1. PEG-INTRON (PEGINTERFERON ALFA-2B) [Suspect]
     Indication: HEPATITIS C
     Dosage: SUBCUTANEOUS
     Route: 058
     Dates: start: 20051222
  2. RIBAVIRIN [Suspect]
     Indication: HEPATITIS C
     Dosage: ORAL
     Route: 048
     Dates: start: 20051222
  3. EFFEXOR [Suspect]
     Indication: STRESS
  4. LEXAPRO [Suspect]
     Indication: STRESS

REACTIONS (14)
  - BLISTER [None]
  - DIARRHOEA [None]
  - DRUG HYPERSENSITIVITY [None]
  - FLUID INTAKE REDUCED [None]
  - GOITRE [None]
  - HEART RATE INCREASED [None]
  - IMPAIRED WORK ABILITY [None]
  - MOVEMENT DISORDER [None]
  - NASOPHARYNGEAL DISORDER [None]
  - ORAL INTAKE REDUCED [None]
  - SOMNOLENCE [None]
  - STRESS [None]
  - ULCER [None]
  - VOMITING [None]
